FAERS Safety Report 10418194 (Version 1)
Quarter: 2014Q3

REPORT INFORMATION
  Report Type: Spontaneous
  Country: US (occurrence: None)
  Receive Date: 20140827
  Receipt Date: 20140827
  Transmission Date: 20150326
  Serious: Yes (Hospitalization, Other)
  Sender: FDA-Public Use
  Company Number: DEP_02244_2014

PATIENT
  Age: 60 Year
  Sex: Male

DRUGS (10)
  1. BUPRENORPHINE [Concomitant]
     Active Substance: BUPRENORPHINE
  2. CLONIDINE. [Concomitant]
     Active Substance: CLONIDINE
  3. METHOCARBAMOL. [Concomitant]
     Active Substance: METHOCARBAMOL
  4. GRALISE [Suspect]
     Active Substance: GABAPENTIN
     Indication: RADICULAR SYNDROME
     Dosage: SAMPLE PACK DF ORAL
     Route: 048
     Dates: start: 2014, end: 201408
  5. GRALISE [Suspect]
     Active Substance: GABAPENTIN
     Indication: NEURALGIA
     Dosage: SAMPLE PACK DF ORAL
     Route: 048
     Dates: start: 2014, end: 201408
  6. BYSTOLIC [Concomitant]
     Active Substance: NEBIVOLOL HYDROCHLORIDE
  7. GRALISE [Suspect]
     Active Substance: GABAPENTIN
     Indication: OFF LABEL USE
     Dosage: SAMPLE PACK DF ORAL
     Route: 048
     Dates: start: 2014, end: 201408
  8. PERCOCET [Concomitant]
     Active Substance: ACETAMINOPHEN\OXYCODONE HYDROCHLORIDE
  9. DICLOFENAC SODIUM. [Concomitant]
     Active Substance: DICLOFENAC SODIUM
  10. VASOTEC [Concomitant]
     Active Substance: ENALAPRIL MALEATE

REACTIONS (6)
  - Loss of consciousness [None]
  - Acute hepatic failure [None]
  - Cardiac failure congestive [None]
  - Rhabdomyolysis [None]
  - Fall [None]
  - Renal failure acute [None]

NARRATIVE: CASE EVENT DATE: 201408
